FAERS Safety Report 21005280 (Version 1)
Quarter: 2022Q2

REPORT INFORMATION
  Report Type: Spontaneous
  Country: US (occurrence: US)
  Receive Date: 20220624
  Receipt Date: 20220624
  Transmission Date: 20220721
  Serious: Yes (Hospitalization)
  Sender: FDA-Public Use
  Company Number: US-PFIZER INC-1472441

PATIENT
  Age: 50 Year
  Sex: Male

DRUGS (2)
  1. BUPIVACAINE HYDROCHLORIDE [Suspect]
     Active Substance: BUPIVACAINE HYDROCHLORIDE
     Indication: Pain
     Dosage: UNK
  2. IBUPROFEN [Concomitant]
     Active Substance: IBUPROFEN
     Dosage: UNK

REACTIONS (1)
  - Drug-induced liver injury [Recovered/Resolved]
